FAERS Safety Report 10595989 (Version 1)
Quarter: 2014Q4

REPORT INFORMATION
  Report Type: Spontaneous
  Country: GB (occurrence: GB)
  Receive Date: 20141120
  Receipt Date: 20141120
  Transmission Date: 20150529
  Serious: Yes (Other)
  Sender: FDA-Public Use
  Company Number: GB-BRISTOL-MYERS SQUIBB COMPANY-21589031

PATIENT
  Age: 75 Year
  Sex: Male
  Weight: 104.5 kg

DRUGS (14)
  1. OILATUM [Concomitant]
     Dates: start: 20140917, end: 20141015
  2. CANESTEN [Concomitant]
     Active Substance: CLOTRIMAZOLE
     Dates: start: 20140820, end: 20140821
  3. ATORVASTATIN [Concomitant]
     Active Substance: ATORVASTATIN
     Dates: start: 20140709, end: 20141015
  4. PARACETAMOL [Concomitant]
     Active Substance: ACETAMINOPHEN
     Dates: start: 20140820, end: 20140914
  5. DAPAGLIFLOZIN [Suspect]
     Active Substance: DAPAGLIFLOZIN
     Dates: start: 20140917
  6. VENLAFAXINE HCL [Concomitant]
     Active Substance: VENLAFAXINE HYDROCHLORIDE
     Dates: start: 20140709, end: 20140808
  7. WARFARIN [Concomitant]
     Active Substance: WARFARIN
     Dates: start: 20140820, end: 20140821
  8. MONTELUKAST [Concomitant]
     Active Substance: MONTELUKAST SODIUM
     Dates: start: 20140625, end: 20140820
  9. E45 CREAM [Concomitant]
     Dates: start: 20140730, end: 20140918
  10. METFORMIN [Concomitant]
     Active Substance: METFORMIN HYDROCHLORIDE
     Dates: start: 20140625, end: 20140924
  11. SOTALOL. [Concomitant]
     Active Substance: SOTALOL
     Dates: start: 20140730, end: 20140924
  12. GLICLAZIDE [Concomitant]
     Active Substance: GLICLAZIDE
     Dates: start: 20140730, end: 20140731
  13. IBUPROFEN. [Concomitant]
     Active Substance: IBUPROFEN
  14. LANSOPRAZOLE. [Concomitant]
     Active Substance: LANSOPRAZOLE
     Dates: start: 20140625, end: 20140828

REACTIONS (1)
  - Hyperkalaemia [Recovered/Resolved]

NARRATIVE: CASE EVENT DATE: 20140921
